FAERS Safety Report 5134222-1 (Version None)
Quarter: 2006Q4

REPORT INFORMATION
  Report Type: 
  Country: None (occurrence: None)
  Receive Date: 20061018
  Receipt Date: 20061013
  Transmission Date: 20070319
  Serious: Yes (Hospitalization)
  Sender: FDA-Public Use
  Company Number: HQWYE559204OCT06

PATIENT
  Age: 36 Year
  Sex: Female

DRUGS (10)
  1. MINOCYCLINE HCL [Suspect]
     Indication: PYREXIA
     Dosage: 200 MG 1X PER 1 DAY, INTRAVENOUS DRIP
     Route: 041
     Dates: start: 20060831, end: 20060913
  2. ARTANE [Suspect]
     Indication: SCHIZOPHRENIA
     Dosage: 2 MG 1X PER 1 DAY, ORAL
     Route: 048
     Dates: start: 20060831, end: 20061002
  3. NITRAZEPAM [Suspect]
     Dosage: 5 MG 1X PER 1 DAY, ORAL
     Route: 048
     Dates: start: 20060831, end: 20061002
  4. CALONAL (PARACETAMOL, ) [Suspect]
     Indication: PYREXIA
     Dosage: 2 DOSAGE FORM 1X PER  1 DAY, ORAL
     Route: 048
     Dates: start: 20060831, end: 20060919
  5. ALPRAZOLAM [Suspect]
     Dosage: 0.8 MG 1X PER 1 DAY, ORAL
     Route: 048
     Dates: start: 20060831, end: 20061002
  6. CLINDAMYCIN HCL [Suspect]
     Indication: PYREXIA
     Dosage: 1200 MG 1X PER 1 DAY, INTRAVENOUS DRIP
     Route: 041
     Dates: start: 20060914, end: 20060919
  7. FIRSTCIN (CEFOZOPRAN HYDROCHLORIDE, INJECTION) [Suspect]
     Indication: PYREXIA
     Dosage: 2 G 1X PER 1 DAY, INTRAVENOUS DRIP
     Route: 041
     Dates: start: 20060831, end: 20060913
  8. HIRNAMIN (LEVOMEPROMAZINE, ) [Suspect]
     Dosage: 36 MG 1X PER 1 DAY, ORAL
     Route: 048
     Dates: start: 20060831, end: 20061002
  9. PAXIL [Suspect]
     Dosage: 20 MG1X PER 1 DAY, ORAL
     Route: 048
     Dates: start: 20060831, end: 20061002
  10. TOFRANIL [Suspect]
     Dosage: 50 MG 1X PER 1 DAY, ORAL
     Route: 048
     Dates: start: 20060831, end: 20061002

REACTIONS (2)
  - HYPERSENSITIVITY [None]
  - LIVER FUNCTION TEST ABNORMAL [None]
